FAERS Safety Report 4768410-0 (Version None)
Quarter: 2005Q3

REPORT INFORMATION
  Report Type: 
  Country: None (occurrence: None)
  Receive Date: 20050906
  Receipt Date: 20050718
  Transmission Date: 20060218
  Serious: No
  Sender: FDA-Public Use
  Company Number: 2005-BP-12049BP

PATIENT
  Age: 60 Year
  Sex: Female

DRUGS (5)
  1. SPIRIVA [Suspect]
     Indication: CHRONIC OBSTRUCTIVE PULMONARY DISEASE
     Dosage: 18 MCG (18MCG,QD), IH
     Route: 055
     Dates: start: 20050716
  2. COMBIVENT (COMBIVENT  /GFR/) [Concomitant]
  3. ALBUTEROL [Concomitant]
  4. METOPROLOL TARTRATE [Concomitant]
  5. LIPITOR [Concomitant]

REACTIONS (1)
  - DYSPNOEA EXACERBATED [None]
